FAERS Safety Report 14057683 (Version 1)
Quarter: 2017Q4

REPORT INFORMATION
  Report Type: Spontaneous
  Country: US (occurrence: US)
  Receive Date: 20171006
  Receipt Date: 20171006
  Transmission Date: 20180321
  Serious: No
  Sender: FDA-Public Use
  Company Number: US-GLAXOSMITHKLINE-US2017GSK152217

PATIENT
  Age: 75 Year
  Sex: Female

DRUGS (3)
  1. PLAVIX [Concomitant]
     Active Substance: CLOPIDOGREL BISULFATE
  2. BREO ELLIPTA [Suspect]
     Active Substance: FLUTICASONE FUROATE\VILANTEROL TRIFENATATE
     Indication: PRODUCT USED FOR UNKNOWN INDICATION
     Route: 055
  3. LIPITOR [Concomitant]
     Active Substance: ATORVASTATIN CALCIUM

REACTIONS (10)
  - Labelled drug-food interaction medication error [Unknown]
  - Retinal disorder [Unknown]
  - Abdominal pain upper [Unknown]
  - Dyspnoea [Unknown]
  - Oral discomfort [Recovered/Resolved]
  - Dysphonia [Unknown]
  - Lactose intolerance [Recovering/Resolving]
  - Condition aggravated [Unknown]
  - Ocular discomfort [Unknown]
  - Eye opacity [Unknown]

NARRATIVE: CASE EVENT DATE: 201707
